FAERS Safety Report 9131173 (Version 3)
Quarter: 2013Q1

REPORT INFORMATION
  Report Type: Report from Study
  Country: US (occurrence: US)
  Receive Date: 20130301
  Receipt Date: 20130327
  Transmission Date: 20140127
  Serious: Yes (Other)
  Sender: FDA-Public Use
  Company Number: US-NOVOPROD-370073

PATIENT
  Age: 61 Year
  Sex: Male
  Weight: 70.93 kg

DRUGS (2)
  1. LIRAGLUTIDE FLEXPEN [Suspect]
     Indication: TYPE 2 DIABETES MELLITUS
     Dosage: 1.8 MG, QD
     Route: 058
     Dates: start: 20111205, end: 20120630
  2. ISOSORBIDE [Concomitant]
     Indication: ANGINA PECTORIS
     Dosage: 60 MG, UNK

REACTIONS (1)
  - Angina pectoris [Not Recovered/Not Resolved]
